FAERS Safety Report 6707851-9 (Version None)
Quarter: 2010Q2

REPORT INFORMATION
  Report Type: 
  Country: None (occurrence: None)
  Receive Date: 20100503
  Receipt Date: 20090721
  Transmission Date: 20101027
  Serious: No
  Sender: FDA-Public Use
  Company Number: US-ASTRAZENECA-2009UW20900

PATIENT
  Sex: Female

DRUGS (3)
  1. NEXIUM [Suspect]
     Indication: ABDOMINAL PAIN UPPER
     Route: 048
  2. FELODIPINE [Concomitant]
  3. MANY OTHER MEDICATIONS [Concomitant]

REACTIONS (2)
  - DIARRHOEA [None]
  - DRUG INTERACTION [None]
